FAERS Safety Report 9148317 (Version 1)
Quarter: 2013Q1

REPORT INFORMATION
  Report Type: Spontaneous
  Country: US (occurrence: US)
  Receive Date: 20130308
  Receipt Date: 20130308
  Transmission Date: 20140127
  Serious: No
  Sender: FDA-Public Use
  Company Number: US-ENDO PHARMACEUTICALS INC.-PERC20130016

PATIENT
  Sex: Female
  Weight: 113.5 kg

DRUGS (1)
  1. PERCOCET 7.5MG/325MG [Suspect]
     Indication: PAIN
     Dosage: 7.5MG/325MG
     Route: 048
     Dates: start: 20130208, end: 20130213

REACTIONS (4)
  - Incoherent [Recovered/Resolved]
  - Fall [Recovered/Resolved]
  - Nausea [Recovered/Resolved]
  - Drug ineffective [Recovered/Resolved]
